FAERS Safety Report 9620866 (Version 2)
Quarter: 2013Q4

REPORT INFORMATION
  Report Type: Spontaneous
  Country: US (occurrence: US)
  Receive Date: 20131015
  Receipt Date: 20131029
  Transmission Date: 20140711
  Serious: Yes (Other)
  Sender: FDA-Public Use
  Company Number: US-SA-2013SA099514

PATIENT
  Age: 54 Year
  Sex: Female

DRUGS (3)
  1. LANTUS SOLOSTAR [Suspect]
     Route: 058
  2. LANTUS SOLOSTAR [Suspect]
     Route: 058
  3. SOLOSTAR [Suspect]

REACTIONS (7)
  - Intervertebral disc protrusion [Unknown]
  - Fall [Unknown]
  - Pain [Unknown]
  - Hearing impaired [Unknown]
  - Visual impairment [Unknown]
  - Blood glucose increased [Unknown]
  - Drug dose omission [Unknown]
